FAERS Safety Report 7582905-6 (Version None)
Quarter: 2011Q2

REPORT INFORMATION
  Report Type: 
  Country: None (occurrence: None)
  Receive Date: 20110630
  Receipt Date: 20110620
  Transmission Date: 20111010
  Serious: Yes (Hospitalization)
  Sender: FDA-Public Use
  Company Number: CA-US-EMD SERONO, INC.-7066608

PATIENT
  Sex: Female

DRUGS (4)
  1. REBIF [Suspect]
     Indication: MULTIPLE SCLEROSIS
     Dates: start: 20070917
  2. CALCIUM CARBONATE [Concomitant]
  3. VITAMIN D [Concomitant]
  4. HORMONE REPLACEMENT THERAPY [Concomitant]

REACTIONS (3)
  - HYSTERECTOMY [None]
  - POST PROCEDURAL HAEMORRHAGE [None]
  - OOPHORECTOMY [None]
